FAERS Safety Report 24046678 (Version 1)
Quarter: 2024Q3

REPORT INFORMATION
  Report Type: Spontaneous
  Country: US (occurrence: None)
  Receive Date: 20240703
  Receipt Date: 20240703
  Transmission Date: 20241017
  Serious: Yes (Other)
  Sender: Public
  Company Number: None

PATIENT
  Sex: Male

DRUGS (1)
  1. LENALIDOMIDE [Suspect]
     Active Substance: LENALIDOMIDE
     Indication: Agranulocytosis
     Dosage: FREQUENCY : EVERY OTHER DAY;?
     Route: 048
     Dates: start: 20220728

REACTIONS (2)
  - Surgery [None]
  - Therapy interrupted [None]
